FAERS Safety Report 24376626 (Version 1)
Quarter: 2024Q3

REPORT INFORMATION
  Report Type: Spontaneous
  Country: GB (occurrence: GB)
  Receive Date: 20240930
  Receipt Date: 20240930
  Transmission Date: 20241017
  Serious: Yes (Other)
  Sender: EPIC PHARM
  Company Number: GB-EPICPHARMA-GB-2024EPCLIT01136

PATIENT
  Age: 75 Year
  Sex: Male

DRUGS (5)
  1. OXYCODONE HYDROCHLORIDE [Suspect]
     Active Substance: OXYCODONE HYDROCHLORIDE
     Indication: Neuralgia
     Route: 065
  2. BUPRENORPHINE [Suspect]
     Active Substance: BUPRENORPHINE
     Indication: Neuralgia
     Route: 065
  3. PREGABALIN [Concomitant]
     Active Substance: PREGABALIN
     Indication: Neuralgia
     Route: 065
  4. PREGABALIN [Concomitant]
     Active Substance: PREGABALIN
     Route: 065
  5. DUTASTERIDE [Concomitant]
     Active Substance: DUTASTERIDE
     Route: 065

REACTIONS (2)
  - Hallucination [Unknown]
  - Confusional state [Unknown]
